FAERS Safety Report 23247343 (Version 1)
Quarter: 2023Q4

REPORT INFORMATION
  Report Type: Spontaneous
  Country: JP (occurrence: JP)
  Receive Date: 20231130
  Receipt Date: 20231130
  Transmission Date: 20240109
  Serious: Yes (Life-Threatening)
  Sender: FDA-Public Use
  Company Number: JP-MYLANLABS-2023M1125480

PATIENT
  Age: 91 Year
  Sex: Female

DRUGS (4)
  1. NORVASC [Suspect]
     Active Substance: AMLODIPINE BESYLATE
     Indication: Hypertension
     Dosage: 2.5 MILLIGRAM, QD
     Route: 048
  2. ARICEPT [Suspect]
     Active Substance: DONEPEZIL HYDROCHLORIDE
     Indication: Dementia Alzheimer^s type
     Dosage: 10 MILLIGRAM, QD
     Route: 048
  3. PAXLOVID [Suspect]
     Active Substance: NIRMATRELVIR\RITONAVIR
     Indication: COVID-19 treatment
     Dosage: NIRMATRELVIR 300MG/ RITONAVIR 100MG; 2X/DAY
     Route: 048
     Dates: start: 20231006
  4. PAXLOVID [Suspect]
     Active Substance: NIRMATRELVIR\RITONAVIR
     Dosage: NIRMATRELVIR 150MG/ RITONAVIR 100MG; 2X/DAY
     Route: 048
     Dates: end: 20231011

REACTIONS (1)
  - Decreased appetite [Unknown]
